FAERS Safety Report 8231637-X (Version None)
Quarter: 2012Q1

REPORT INFORMATION
  Report Type: 
  Country: None (occurrence: None)
  Receive Date: 20120323
  Receipt Date: 20120313
  Transmission Date: 20120608
  Serious: Yes (Hospitalization, Other)
  Sender: FDA-Public Use
  Company Number: US-ELI_LILLY_AND_COMPANY-US201006001594

PATIENT
  Sex: Female

DRUGS (4)
  1. FORTEO [Suspect]
     Dosage: 20 UG, QD
     Route: 058
  2. FORTEO [Suspect]
     Indication: OSTEOPOROSIS
     Dosage: 20 UG, DAILY (1/D)
     Route: 058
     Dates: start: 20100416
  3. FORTEO [Suspect]
     Dosage: 20 UG, QD
     Route: 058
  4. FORTEO [Suspect]
     Dosage: 20 UG, DAILY (1/D)
     Route: 058

REACTIONS (14)
  - FALL [None]
  - HAEMATOMA [None]
  - HAIR COLOUR CHANGES [None]
  - PAIN IN EXTREMITY [None]
  - ARTHRITIS [None]
  - CONTUSION [None]
  - DIZZINESS [None]
  - MUSCLE SPASMS [None]
  - PAIN [None]
  - CONCUSSION [None]
  - GAIT DISTURBANCE [None]
  - ARTHRALGIA [None]
  - INJECTION SITE PAIN [None]
  - MUSCULAR WEAKNESS [None]
